FAERS Safety Report 23802574 (Version 5)
Quarter: 2024Q3

REPORT INFORMATION
  Report Type: Report from Study
  Country: CO (occurrence: CO)
  Receive Date: 20240501
  Receipt Date: 20240911
  Transmission Date: 20241017
  Serious: Yes (Other)
  Sender: REGENERON
  Company Number: CO-BAYER-2024A064379

PATIENT
  Sex: Male

DRUGS (17)
  1. EYLEA [Suspect]
     Active Substance: AFLIBERCEPT
     Indication: Diabetic retinal oedema
     Dosage: 2 MG BOTH EYES, SOLUTION FOR INJECTION, 40 MG/ML
     Route: 031
     Dates: start: 20210308, end: 20210308
  2. EYLEA [Suspect]
     Active Substance: AFLIBERCEPT
     Dosage: 2 MG BOTH EYES, SOLUTION FOR INJECTION, 40 MG/ML
     Route: 031
     Dates: start: 20210410, end: 20210410
  3. EYLEA [Suspect]
     Active Substance: AFLIBERCEPT
     Dosage: 2 MG BOTH EYES, SOLUTION FOR INJECTION, 40 MG/ML
     Route: 031
     Dates: start: 20210515, end: 20210515
  4. EYLEA [Suspect]
     Active Substance: AFLIBERCEPT
     Dosage: 2 MG BOTH EYES, SOLUTION FOR INJECTION, 40 MG/ML
     Route: 031
     Dates: start: 20210618, end: 20210618
  5. EYLEA [Suspect]
     Active Substance: AFLIBERCEPT
     Dosage: 2 MG BOTH EYES, SOLUTION FOR INJECTION, 40 MG/ML
     Route: 031
     Dates: start: 20210722, end: 20210722
  6. EYLEA [Suspect]
     Active Substance: AFLIBERCEPT
     Dosage: 2 MG BOTH EYES, SOLUTION FOR INJECTION, 40 MG/ML
     Route: 031
     Dates: start: 20210803, end: 20210803
  7. EYLEA [Suspect]
     Active Substance: AFLIBERCEPT
     Dosage: 2 MG, ONCE BOTH EYES, SOLUTION FOR INJECTION, 40 MG/ML
     Route: 031
     Dates: start: 20210917, end: 20210917
  8. EYLEA [Suspect]
     Active Substance: AFLIBERCEPT
     Dosage: 2 MG, ONCE BOTH EYES, SOLUTION FOR INJECTION, 40 MG/ML
     Route: 031
     Dates: start: 20211118, end: 20211118
  9. EYLEA [Suspect]
     Active Substance: AFLIBERCEPT
     Dosage: 2 MG, ONCE BOTH EYES, SOLUTION FOR INJECTION, 40 MG/ML
     Route: 031
     Dates: start: 20220120, end: 20220120
  10. EYLEA [Suspect]
     Active Substance: AFLIBERCEPT
     Dosage: 2 MG, ONCE BOTH EYES, SOLUTION FOR INJECTION, 40 MG/ML
     Route: 031
     Dates: start: 20220303, end: 20220303
  11. EYLEA [Suspect]
     Active Substance: AFLIBERCEPT
     Dosage: 2 MG, ONCE BOTH EYES, SOLUTION FOR INJECTION, 40 MG/ML
     Route: 031
     Dates: start: 20220407, end: 20220407
  12. EYLEA [Suspect]
     Active Substance: AFLIBERCEPT
     Dosage: 2 MG, ONCE BOTH EYES, SOLUTION FOR INJECTION, 40 MG/ML
     Route: 031
     Dates: start: 20220512, end: 20220512
  13. EYLEA [Suspect]
     Active Substance: AFLIBERCEPT
     Dosage: 2 MG, ONCE LEFT EYE, SOLUTION FOR INJECTION, 40 MG/ML
     Route: 031
     Dates: start: 20230220, end: 20230220
  14. EYLEA [Suspect]
     Active Substance: AFLIBERCEPT
     Dosage: 2 MG, ONCE LEFT EYE, SOLUTION FOR INJECTION, 40 MG/ML
     Route: 031
     Dates: start: 20230502, end: 20230502
  15. EYLEA [Suspect]
     Active Substance: AFLIBERCEPT
     Dosage: 2 MG, ONCE LEFT EYE, SOLUTION FOR INJECTION, 40 MG/ML
     Route: 031
     Dates: start: 20230606, end: 20230606
  16. EYLEA [Suspect]
     Active Substance: AFLIBERCEPT
     Dosage: 2 MG, ONCE BOTH EYES, SOLUTION FOR INJECTION, 40 MG/ML
     Route: 031
     Dates: start: 20230922, end: 20230922
  17. EYLEA [Suspect]
     Active Substance: AFLIBERCEPT
     Dosage: 2 MG, ONCE LEFT EYE, SOLUTION FOR INJECTION, 40 MG/ML
     Route: 031
     Dates: start: 20240116

REACTIONS (6)
  - Eye haemorrhage [Unknown]
  - Blindness [Not Recovered/Not Resolved]
  - Eye operation [Recovered/Resolved]
  - Eye injury [Not Recovered/Not Resolved]
  - Diabetic retinal oedema [Unknown]
  - Inappropriate schedule of product administration [Not Recovered/Not Resolved]

NARRATIVE: CASE EVENT DATE: 20220407
